FAERS Safety Report 20129086 (Version 2)
Quarter: 2021Q4

REPORT INFORMATION
  Report Type: Spontaneous
  Country: US (occurrence: US)
  Receive Date: 20211130
  Receipt Date: 20211225
  Transmission Date: 20220303
  Serious: Yes (Hospitalization, Other)
  Sender: FDA-Public Use
  Company Number: US-ACTELION-A-NJ2019-191114

PATIENT
  Age: 65 Year
  Sex: Female
  Weight: 101.59 kg

DRUGS (16)
  1. OPSUMIT [Suspect]
     Active Substance: MACITENTAN
     Indication: Pulmonary arterial hypertension
     Dosage: 10 MG, QD
     Route: 048
     Dates: start: 20190505
  2. OPSUMIT [Suspect]
     Active Substance: MACITENTAN
     Route: 048
     Dates: start: 2019
  3. OPSUMIT [Suspect]
     Active Substance: MACITENTAN
     Route: 048
     Dates: start: 20200213
  4. ADEMPAS [Suspect]
     Active Substance: RIOCIGUAT
     Indication: Pulmonary arterial hypertension
     Dosage: 2.5 MG, TID
     Route: 065
     Dates: start: 201811
  5. LEVOTHYROXINE [Concomitant]
     Active Substance: LEVOTHYROXINE
     Dosage: 100 MCG, OD
  6. ATENOLOL [Concomitant]
     Active Substance: ATENOLOL
     Dosage: 50 MG AT BED TIME
  7. SIMVASTATIN [Concomitant]
     Active Substance: SIMVASTATIN
     Dosage: 20 MG AT BEDTIME
  8. OMEPRAZOLE [Concomitant]
     Active Substance: OMEPRAZOLE
     Dosage: 20 MG IN AM
  9. DULOXETINE DRLA [Concomitant]
     Dosage: 60 MG, OD
  10. METFORMIN [Concomitant]
     Active Substance: METFORMIN HYDROCHLORIDE
     Dosage: 500 MG, BID
  11. TRAMADOL [Concomitant]
     Active Substance: TRAMADOL
     Dosage: 50 MG,2 TAB AT BREAKFAST, 1 TAB AT LUNCH, 1 TAB AT DINNER AND 2 TAB AT BEDTIME
  12. MELOXICAM [Concomitant]
     Active Substance: MELOXICAM
     Dosage: 15 MG, OD
  13. CALCIUM [Concomitant]
     Active Substance: CALCIUM
     Dosage: 600 MG, OD
  14. MAGNESIUM [Concomitant]
     Active Substance: MAGNESIUM
     Dosage: 250 MG, OD
  15. VITAMINS [Concomitant]
     Active Substance: VITAMINS
  16. VITAMIN B12 [Concomitant]
     Active Substance: CYANOCOBALAMIN

REACTIONS (5)
  - Hip arthroplasty [Not Recovered/Not Resolved]
  - Knee arthroplasty [Unknown]
  - Peripheral swelling [Not Recovered/Not Resolved]
  - Weight increased [Not Recovered/Not Resolved]
  - Headache [Not Recovered/Not Resolved]

NARRATIVE: CASE EVENT DATE: 20190514
